FAERS Safety Report 15651759 (Version 1)
Quarter: 2018Q4

REPORT INFORMATION
  Report Type: Report from Study
  Country: FR (occurrence: FR)
  Receive Date: 20181123
  Receipt Date: 20181123
  Transmission Date: 20190205
  Serious: Yes (Other)
  Sender: FDA-Public Use
  Company Number: PHHY2018FR163276

PATIENT
  Age: 12 Year
  Sex: Male
  Weight: 41.5 kg

DRUGS (1)
  1. OMNITROPE [Suspect]
     Active Substance: SOMATROPIN
     Indication: GROWTH HORMONE DEFICIENCY
     Dosage: 1.4 MG (10MG/1.5ML), 6 INJECTIONS PER WEEK
     Route: 058
     Dates: start: 201603

REACTIONS (1)
  - Lipodystrophy acquired [Recovered/Resolved]

NARRATIVE: CASE EVENT DATE: 201609
